FAERS Safety Report 8056066-3 (Version None)
Quarter: 2012Q1

REPORT INFORMATION
  Report Type: 
  Country: None (occurrence: None)
  Receive Date: 20120119
  Receipt Date: 20120110
  Transmission Date: 20120608
  Serious: Yes (Hospitalization)
  Sender: FDA-Public Use
  Company Number: FR-JNJFOC-20120103437

PATIENT
  Sex: Male

DRUGS (11)
  1. VALPROIC ACID [Concomitant]
     Indication: PRODUCT USED FOR UNKNOWN INDICATION
     Route: 048
  2. VALPROIC ACID [Concomitant]
     Route: 048
  3. RISPERDAL [Suspect]
     Indication: PRODUCT USED FOR UNKNOWN INDICATION
     Route: 048
     Dates: end: 20111214
  4. DIAMICRON [Suspect]
     Indication: DIABETES MELLITUS
     Route: 048
     Dates: end: 20111210
  5. JANUVIA [Concomitant]
     Indication: DIABETES MELLITUS
     Route: 048
     Dates: end: 20111210
  6. INDAPAMIDE [Suspect]
     Indication: HYPERTENSION
     Route: 048
     Dates: end: 20111210
  7. OXAZEPAM [Concomitant]
     Indication: PRODUCT USED FOR UNKNOWN INDICATION
     Route: 048
  8. FENOFIBRATE [Suspect]
     Indication: DYSLIPIDAEMIA
     Route: 048
     Dates: end: 20111210
  9. SOTALOL HCL [Concomitant]
     Indication: ARRHYTHMIA
     Route: 048
  10. ANAFRANIL [Concomitant]
     Indication: DEPRESSION
     Route: 048
  11. MEPRONIZINE [Suspect]
     Indication: INSOMNIA
     Route: 048
     Dates: end: 20111214

REACTIONS (3)
  - FALL [None]
  - HYPOKALAEMIA [None]
  - HYPONATRAEMIA [None]
